FAERS Safety Report 7667511-7 (Version None)
Quarter: 2011Q3

REPORT INFORMATION
  Report Type: 
  Country: None (occurrence: None)
  Receive Date: 20110806
  Receipt Date: 20110427
  Transmission Date: 20111222
  Serious: No
  Sender: FDA-Public Use
  Company Number: US-ABBOTT-11P-163-0722189-00

PATIENT
  Sex: Female

DRUGS (4)
  1. SIMVASTATIN [Concomitant]
     Indication: LOW DENSITY LIPOPROTEIN INCREASED
     Route: 048
  2. TOPROL-XL [Concomitant]
     Indication: BLOOD PRESSURE
     Dosage: AT BEDTIME
     Route: 048
  3. NIASPAN [Suspect]
     Indication: BLOOD TRIGLYCERIDES INCREASED
     Route: 048
     Dates: start: 20110401, end: 20110401
  4. TOPROL-XL [Concomitant]
     Indication: CARDIAC DISORDER

REACTIONS (4)
  - PRESYNCOPE [None]
  - SKIN BURNING SENSATION [None]
  - PALPITATIONS [None]
  - RESPIRATORY RATE INCREASED [None]
